FAERS Safety Report 22172389 (Version 1)
Quarter: 2023Q2

REPORT INFORMATION
  Report Type: Spontaneous
  Country: US (occurrence: None)
  Receive Date: 20230404
  Receipt Date: 20230404
  Transmission Date: 20230721
  Serious: Yes (Other)
  Sender: FDA-Public Use
  Company Number: US-ACS-20230085

PATIENT
  Age: 7 Decade
  Sex: Male

DRUGS (2)
  1. PENICILLIN G [Suspect]
     Active Substance: PENICILLIN G
     Indication: Endocarditis bacterial
     Dosage: INFUSION ()
     Route: 040
  2. GENTAMICIN [Concomitant]
     Active Substance: GENTAMICIN
     Indication: Endocarditis bacterial
     Dosage: INFUSION ()
     Route: 040

REACTIONS (2)
  - Leukopenia [Recovered/Resolved]
  - Neutropenia [Recovered/Resolved]
